FAERS Safety Report 12729064 (Version 1)
Quarter: 2016Q3

REPORT INFORMATION
  Report Type: Other
  Country: None (occurrence: US)
  Receive Date: 20160909
  Receipt Date: 20160909
  Transmission Date: 20161109
  Serious: Yes (Other)
  Sender: FDA-Public Use
  Company Number: US-GUTHY-RENKER LLC-1057215

PATIENT
  Age: 34 Year
  Sex: Female

DRUGS (3)
  1. CLARISONIC BRUSH (OTC) [Concomitant]
  2. IT COSMETICS BYE BYE FOUNDATION SPF 50+ [Suspect]
     Active Substance: TITANIUM DIOXIDE\ZINC OXIDE
     Indication: PHOTOSENSITIVITY REACTION
     Route: 061
     Dates: start: 20160824, end: 20160824
  3. BIRTH CONTROL PRODUCT [Concomitant]

REACTIONS (4)
  - Hypersensitivity [Recovered/Resolved]
  - Chemical injury [None]
  - Lip exfoliation [None]
  - Dermatitis contact [None]

NARRATIVE: CASE EVENT DATE: 20160824
